FAERS Safety Report 4773032-1 (Version None)
Quarter: 2005Q3

REPORT INFORMATION
  Report Type: 
  Country: None (occurrence: None)
  Receive Date: 20050916
  Receipt Date: 20050909
  Transmission Date: 20060218
  Serious: Yes (Death)
  Sender: FDA-Public Use
  Company Number: 2005-09-0329

PATIENT
  Age: 75 Year
  Sex: Female

DRUGS (1)
  1. TEMODAL [Suspect]
     Indication: GLIOSARCOMA
     Dosage: ORAL
     Route: 048

REACTIONS (1)
  - PNEUMONIA [None]
